FAERS Safety Report 9870438 (Version 1)
Quarter: 2014Q1

REPORT INFORMATION
  Report Type: Spontaneous
  Country: US (occurrence: US)
  Receive Date: 20140205
  Receipt Date: 20140205
  Transmission Date: 20141002
  Serious: Yes (Hospitalization, Other)
  Sender: FDA-Public Use
  Company Number: US-BAXTER-2014BAX004484

PATIENT
  Sex: Male

DRUGS (1)
  1. DIANEAL LOW CALCIUM [Suspect]
     Indication: PERITONEAL DIALYSIS
     Route: 033
     Dates: start: 2013

REACTIONS (6)
  - Arthropathy [Unknown]
  - White blood cell count increased [Not Recovered/Not Resolved]
  - Dizziness [Recovered/Resolved]
  - Incoherent [Recovered/Resolved]
  - Gait disturbance [Unknown]
  - Dysstasia [Unknown]
